FAERS Safety Report 8614933-3 (Version None)
Quarter: 2012Q3

REPORT INFORMATION
  Report Type: 
  Country: None (occurrence: None)
  Receive Date: 20120810
  Receipt Date: 20120810
  Transmission Date: 20120928
  Serious: Yes (Death)
  Sender: FDA-Public Use
  Company Number: None

PATIENT
  Age: 92 Year
  Sex: Female

DRUGS (1)
  1. RIVAROXABAN 15MG JANSSEN [Suspect]
     Indication: CEREBROVASCULAR ACCIDENT PROPHYLAXIS
     Dosage: 15MG DAILY PO
     Route: 048

REACTIONS (4)
  - SUBDURAL HAEMATOMA [None]
  - SPEECH DISORDER [None]
  - FALL [None]
  - MENTAL STATUS CHANGES [None]
